FAERS Safety Report 4465344-6 (Version None)
Quarter: 2004Q3

REPORT INFORMATION
  Report Type: 
  Country: None (occurrence: None)
  Receive Date: 20040929
  Receipt Date: 20040910
  Transmission Date: 20050211
  Serious: Yes (Other)
  Sender: FDA-Public Use
  Company Number: USA040977980

PATIENT
  Age: 72 Year
  Sex: Female
  Weight: 72 kg

DRUGS (2)
  1. HUMALOG [Suspect]
     Indication: DIABETES MELLITUS
     Dates: start: 20030101
  2. LANTUS [Concomitant]

REACTIONS (10)
  - ANGIOPATHY [None]
  - CARDIAC DISORDER [None]
  - CATARACT [None]
  - DIFFICULTY IN WALKING [None]
  - IMPAIRED DRIVING ABILITY [None]
  - MEDICATION ERROR [None]
  - MOBILITY DECREASED [None]
  - PHARMACEUTICAL PRODUCT COMPLAINT [None]
  - UNEVALUABLE EVENT [None]
  - VISUAL ACUITY REDUCED [None]
